FAERS Safety Report 9923764 (Version 1)
Quarter: 2014Q1

REPORT INFORMATION
  Report Type: Spontaneous
  Country: US (occurrence: US)
  Receive Date: 20140225
  Receipt Date: 20140225
  Transmission Date: 20141002
  Serious: No
  Sender: FDA-Public Use
  Company Number: US-AMGEN-USASP2014002807

PATIENT
  Age: 60 Year
  Sex: Female

DRUGS (2)
  1. ENBREL [Suspect]
     Indication: PSORIASIS
     Dosage: UNK, 2 TIMES/WK
     Route: 065
     Dates: start: 20121121, end: 201311
  2. METHOTREXATE                       /00113802/ [Concomitant]
     Dosage: UNK
     Route: 065

REACTIONS (2)
  - Uterine prolapse [Not Recovered/Not Resolved]
  - Abdominal discomfort [Not Recovered/Not Resolved]
